FAERS Safety Report 6628094-3 (Version None)
Quarter: 2010Q1

REPORT INFORMATION
  Report Type: 
  Country: None (occurrence: None)
  Receive Date: 20100311
  Receipt Date: 20090914
  Transmission Date: 20100710
  Serious: No
  Sender: FDA-Public Use
  Company Number: A0807201A

PATIENT
  Age: 54 Year
  Sex: Male

DRUGS (3)
  1. NICORETTE [Suspect]
  2. NICORETTE (MINT) [Suspect]
  3. CHOLESTEROL REDUCING AGENT [Concomitant]

REACTIONS (2)
  - DRUG ADMINISTRATION ERROR [None]
  - NICOTINE DEPENDENCE [None]
